FAERS Safety Report 5239408-3 (Version None)
Quarter: 2007Q1

REPORT INFORMATION
  Report Type: 
  Country: None (occurrence: None)
  Receive Date: 20070214
  Receipt Date: 20070214
  Transmission Date: 20070707
  Serious: Yes (Hospitalization)
  Sender: FDA-Public Use
  Company Number: None

PATIENT
  Age: 85 Year
  Sex: Female
  Weight: 57.1532 kg

DRUGS (17)
  1. RISPERIDONE [Suspect]
     Indication: DEMENTIA
     Dates: start: 20060428, end: 20060928
  2. EPOGEN [Suspect]
     Indication: ANAEMIA
  3. METHOTREXATE [Concomitant]
  4. PLAVIX [Concomitant]
  5. COLACE [Concomitant]
  6. LEVOTHYROXINE SODIUM [Concomitant]
  7. LISINOPRIL [Concomitant]
  8. ASPIRIN [Concomitant]
  9. AMIODARONE HCL [Concomitant]
  10. GALANTAMINE HYDROBROMIDE [Concomitant]
  11. REMERON [Concomitant]
  12. RISPERDAL [Concomitant]
  13. PROCRIT [Concomitant]
  14. NITROQUICK [Concomitant]
  15. CYANOCOBALAMINE [Concomitant]
  16. OSCAL WITH VIT D [Concomitant]
  17. FERROUS SULFATE [Concomitant]

REACTIONS (1)
  - CEREBROVASCULAR ACCIDENT [None]
